FAERS Safety Report 15432127 (Version 5)
Quarter: 2019Q4

REPORT INFORMATION
  Report Type: Report from Study
  Country: US (occurrence: US)
  Receive Date: 20180926
  Receipt Date: 20191212
  Transmission Date: 20200122
  Serious: No
  Sender: FDA-Public Use
  Company Number: PHEH2018US039545

PATIENT
  Sex: Female

DRUGS (1)
  1. COSENTYX [Suspect]
     Active Substance: SECUKINUMAB
     Indication: PRODUCT USED FOR UNKNOWN INDICATION
     Route: 065

REACTIONS (7)
  - Gait disturbance [Unknown]
  - Product dose omission [Unknown]
  - Skin irritation [Unknown]
  - Muscle spasms [Unknown]
  - Nasopharyngitis [Unknown]
  - Condition aggravated [Unknown]
  - Dysphonia [Unknown]
